FAERS Safety Report 4395445-2 (Version None)
Quarter: 2004Q3

REPORT INFORMATION
  Report Type: 
  Country: None (occurrence: None)
  Receive Date: 20040713
  Receipt Date: 20040628
  Transmission Date: 20050211
  Serious: Yes (Other)
  Sender: FDA-Public Use
  Company Number: PHBS2004JP08777

PATIENT
  Age: 68 Year
  Sex: Male

DRUGS (2)
  1. LAMISIL [Suspect]
     Indication: NAIL TINEA
     Dosage: 125 MG/D
     Route: 048
     Dates: start: 20040601, end: 20040626
  2. ATOLANT [Concomitant]
     Route: 061
     Dates: start: 20040601

REACTIONS (6)
  - ERYTHEMA [None]
  - EXANTHEM [None]
  - NAUSEA [None]
  - PURPURA [None]
  - RASH PAPULAR [None]
  - SKIN INFLAMMATION [None]
